FAERS Safety Report 8851393 (Version 1)
Quarter: 2012Q4

REPORT INFORMATION
  Report Type: 
  Country: US (occurrence: US)
  Receive Date: 20121022
  Receipt Date: 20121022
  Transmission Date: 20130627
  Serious: Yes (Hospitalization)
  Sender: FDA-Public Use
  Company Number: US-ROCHE-1141576

PATIENT
  Sex: Female

DRUGS (13)
  1. NUTROPIN [Suspect]
     Indication: GROWTH HORMONE DEFICIENCY
     Dosage: 12 cc
     Route: 058
  2. SYNTHROID [Concomitant]
     Route: 048
  3. TAGAMET [Concomitant]
     Route: 048
  4. E-MYCIN [Concomitant]
     Route: 065
  5. COMPAZINE [Concomitant]
     Route: 065
  6. ZOLOFT [Concomitant]
     Route: 048
  7. VITAMIN B COMPLEX [Concomitant]
     Route: 065
  8. DEMADEX [Concomitant]
     Route: 065
  9. ASPIRIN [Concomitant]
     Route: 048
  10. IMDUR [Concomitant]
     Route: 048
  11. COZAAR [Concomitant]
     Route: 048
  12. TRICOR [Concomitant]
     Route: 048
  13. COREG [Concomitant]
     Route: 048

REACTIONS (5)
  - Myocardial ischaemia [Unknown]
  - Anaemia [Unknown]
  - Blood glucose fluctuation [Unknown]
  - Fluid retention [Unknown]
  - Back pain [Unknown]
